FAERS Safety Report 25479673 (Version 2)
Quarter: 2025Q3

REPORT INFORMATION
  Report Type: Spontaneous
  Country: US (occurrence: US)
  Receive Date: 20250625
  Receipt Date: 20250701
  Transmission Date: 20251021
  Serious: No
  Sender: SANOFI AVENTIS
  Company Number: US-SANOFI-02564690

PATIENT
  Age: 72 Year
  Sex: Female

DRUGS (2)
  1. DUPIXENT [Suspect]
     Active Substance: DUPILUMAB
     Indication: Chronic obstructive pulmonary disease
     Dosage: 300 MG, QOW
  2. AMANTADINE [Concomitant]
     Active Substance: AMANTADINE

REACTIONS (4)
  - Tremor [Unknown]
  - Injection site haemorrhage [Unknown]
  - Injection site pain [Unknown]
  - Dental implantation [Recovering/Resolving]

NARRATIVE: CASE EVENT DATE: 20250619
